FAERS Safety Report 8015296-7 (Version None)
Quarter: 2011Q4

REPORT INFORMATION
  Report Type: 
  Country: None (occurrence: None)
  Receive Date: 20111230
  Receipt Date: 20111222
  Transmission Date: 20120403
  Serious: Yes (Hospitalization)
  Sender: FDA-Public Use
  Company Number: US-VERTEX PHARMACEUTICALS INC.-AE-2011-005561

PATIENT
  Sex: Male

DRUGS (3)
  1. RIBAVIRIN [Concomitant]
     Indication: HEPATITIS C
     Route: 048
     Dates: start: 20111116, end: 20111204
  2. INCIVEK [Suspect]
     Indication: HEPATITIS C
     Route: 048
     Dates: start: 20111116, end: 20111204
  3. PEGASYS [Concomitant]
     Indication: HEPATITIS C
     Route: 058
     Dates: start: 20111116, end: 20111204

REACTIONS (2)
  - DEHYDRATION [None]
  - ANAEMIA [None]
